FAERS Safety Report 13346650 (Version 2)
Quarter: 2017Q2

REPORT INFORMATION
  Report Type: Spontaneous
  Country: JP (occurrence: JP)
  Receive Date: 20170317
  Receipt Date: 20170621
  Transmission Date: 20170830
  Serious: Yes (Hospitalization, Other)
  Sender: FDA-Public Use
  Company Number: JP-PFIZER INC-2017108937

PATIENT
  Age: 87 Year
  Sex: Female
  Weight: 35 kg

DRUGS (5)
  1. SOLANAX [Suspect]
     Active Substance: ALPRAZOLAM
     Dosage: 0.4 MG, 3X/DAY
     Route: 048
     Dates: start: 1997
  2. DEPAS [Concomitant]
     Active Substance: ETIZOLAM
     Dosage: UNK
  3. SOLANAX [Suspect]
     Active Substance: ALPRAZOLAM
     Dosage: 0.4 MG, 2X/DAY
     Route: 048
     Dates: start: 2017
  4. SOLANAX [Suspect]
     Active Substance: ALPRAZOLAM
     Dosage: 0.4 MG, 3X/DAY
     Route: 048
     Dates: end: 20170308
  5. SOLANAX [Suspect]
     Active Substance: ALPRAZOLAM
     Dosage: 0.4 MG IN THE MORNING, 0.2 MG IN THE AFTERNOON AND 0.4 MG IN THE NIGHT
     Route: 048
     Dates: start: 201703, end: 2017

REACTIONS (12)
  - Gastric haemorrhage [Unknown]
  - Aphasia [Unknown]
  - Condition aggravated [Unknown]
  - Dizziness [Unknown]
  - Withdrawal syndrome [Unknown]
  - Tremor [Unknown]
  - Anaemia [Unknown]
  - Insomnia [Unknown]
  - Cardio-respiratory arrest [Unknown]
  - Neuropsychiatric symptoms [Unknown]
  - Anxiety [Unknown]
  - Epilepsy [Unknown]

NARRATIVE: CASE EVENT DATE: 2017
